FAERS Safety Report 4774813-0 (Version None)
Quarter: 2005Q3

REPORT INFORMATION
  Report Type: 
  Country: None (occurrence: None)
  Receive Date: 20050919
  Receipt Date: 20050913
  Transmission Date: 20060218
  Serious: Yes (Hospitalization)
  Sender: FDA-Public Use
  Company Number: T05-CAN-03319-01

PATIENT
  Age: 26 Year
  Sex: Female
  Weight: 69 kg

DRUGS (3)
  1. CIPRALEX (ESCITALOPRAM) [Suspect]
     Indication: DEPRESSION
     Dosage: 10 MG QD PO
     Route: 048
     Dates: start: 20050714, end: 20050727
  2. CIPRALEX (ESCITALOPRAM) [Suspect]
     Indication: DEPRESSION
     Dosage: 20 MG QD PO
     Route: 048
     Dates: start: 20050728, end: 20050829
  3. ASPIRIN [Suspect]
     Indication: TRANSIENT ISCHAEMIC ATTACK
     Dosage: 81 MG QD PO
     Route: 048
     Dates: start: 19980101

REACTIONS (5)
  - BLOOD PRESSURE DIASTOLIC DECREASED [None]
  - BRAIN NEOPLASM [None]
  - CONVULSION [None]
  - OXYGEN SATURATION DECREASED [None]
  - SPEECH DISORDER [None]
